FAERS Safety Report 9502854 (Version 1)
Quarter: 2013Q1

REPORT INFORMATION
  Report Type: Spontaneous
  Country: US (occurrence: None)
  Receive Date: 20130225
  Receipt Date: 20130225
  Transmission Date: 20140127
  Serious: Yes (Hospitalization)
  Sender: FDA-Public Use
  Company Number: 365910

PATIENT
  Age: 78 Year
  Sex: Female
  Weight: 61.2 kg

DRUGS (3)
  1. VICTOZA (LIRAGLUTIDE) SOLUTION FOR INJECTION, 6MG/ML [Suspect]
     Indication: TYPE 2 DIABETES MELLITUS
     Route: 058
  2. LEVEMIR (INSULIN DETEMIR) [Concomitant]
  3. LIPITOR [Concomitant]

REACTIONS (1)
  - Pancreatitis [None]
